FAERS Safety Report 13797990 (Version 1)
Quarter: 2017Q3

REPORT INFORMATION
  Report Type: Spontaneous
  Country: US (occurrence: US)
  Receive Date: 20170727
  Receipt Date: 20170727
  Transmission Date: 20171127
  Serious: No
  Sender: FDA-Public Use
  Company Number: US-PFIZER INC-2017319423

PATIENT
  Age: 77 Year
  Sex: Female

DRUGS (4)
  1. DILTIAZEM. [Concomitant]
     Active Substance: DILTIAZEM
     Dosage: 180 MG, ONCE
     Route: 048
  2. LORAZEPAM. [Concomitant]
     Active Substance: LORAZEPAM
     Indication: NERVOUSNESS
  3. METOPROLOL. [Concomitant]
     Active Substance: METOPROLOL
     Indication: BLOOD PRESSURE MANAGEMENT
  4. TOVIAZ [Suspect]
     Active Substance: FESOTERODINE FUMARATE
     Indication: BLADDER DISORDER
     Dosage: 8 MG, UNK
     Route: 048

REACTIONS (2)
  - Extra dose administered [Unknown]
  - Heart rate increased [Unknown]

NARRATIVE: CASE EVENT DATE: 20170720
